FAERS Safety Report 13975233 (Version 1)
Quarter: 2017Q3

REPORT INFORMATION
  Report Type: Spontaneous
  Country: US (occurrence: US)
  Receive Date: 20170915
  Receipt Date: 20170915
  Transmission Date: 20171128
  Serious: Yes (Other)
  Sender: FDA-Public Use
  Company Number: US-MYLANLABS-2017M1058763

PATIENT
  Age: 51 Year
  Sex: Female

DRUGS (1)
  1. FONDAPARINUX [Suspect]
     Active Substance: FONDAPARINUX
     Indication: PULMONARY EMBOLISM
     Dosage: UNK

REACTIONS (3)
  - Injection site haemorrhage [Unknown]
  - Haemorrhagic disorder [Recovered/Resolved]
  - Dermatitis bullous [Recovered/Resolved]
